FAERS Safety Report 5950316-2 (Version None)
Quarter: 2008Q4

REPORT INFORMATION
  Report Type: 
  Country: None (occurrence: None)
  Receive Date: 20081112
  Receipt Date: 20081104
  Transmission Date: 20090506
  Serious: Yes (Other)
  Sender: FDA-Public Use
  Company Number: PHEH2008US09528

PATIENT
  Sex: Female

DRUGS (4)
  1. ZOMETA [Suspect]
     Indication: METASTASES TO BONE
     Dosage: 4 MG, MONTHLY
     Route: 042
     Dates: start: 20080115, end: 20080919
  2. FLUOROURACIL [Concomitant]
     Dosage: UNK
     Dates: start: 20080101, end: 20080502
  3. CYTOXAN [Concomitant]
     Dosage: UNK
     Dates: start: 20080101, end: 20080502
  4. EPIRUBICIN [Concomitant]
     Dosage: UNK
     Dates: start: 20080101, end: 20080502

REACTIONS (6)
  - IMPAIRED HEALING [None]
  - OSTEONECROSIS [None]
  - TOOTH ABSCESS [None]
  - TOOTH EXTRACTION [None]
  - TOOTH INFECTION [None]
  - TOOTHACHE [None]
